FAERS Safety Report 4437968-3 (Version None)
Quarter: 2004Q3

REPORT INFORMATION
  Report Type: 
  Country: None (occurrence: None)
  Receive Date: 20040831
  Receipt Date: 20040803
  Transmission Date: 20050211
  Serious: Yes (Life-Threatening)
  Sender: FDA-Public Use
  Company Number: JP-ROCHE-376322

PATIENT
  Age: 63 Year
  Sex: Female

DRUGS (2)
  1. HORIZON [Suspect]
     Indication: PREMEDICATION
     Route: 042
     Dates: start: 20040723, end: 20040723
  2. BUSCOPAN [Concomitant]
     Indication: PREMEDICATION
     Route: 042
     Dates: start: 20040723, end: 20040723

REACTIONS (6)
  - BLOOD PRESSURE DIASTOLIC INCREASED [None]
  - CARDIAC ARREST [None]
  - CHEST PAIN [None]
  - DIZZINESS [None]
  - RESPIRATORY DEPRESSION [None]
  - TREMOR [None]
